FAERS Safety Report 11126902 (Version 1)
Quarter: 2015Q2

REPORT INFORMATION
  Report Type: Spontaneous
  Country: JP (occurrence: JP)
  Receive Date: 20150520
  Receipt Date: 20150520
  Transmission Date: 20150821
  Serious: Yes (Other)
  Sender: FDA-Public Use
  Company Number: JP-ALLERGAN-1509340US

PATIENT
  Age: 70 Year
  Sex: Female

DRUGS (1)
  1. BOTOX [Suspect]
     Active Substance: ONABOTULINUMTOXINA
     Indication: FACIAL SPASM
     Dosage: 20 IU, SINGLE
     Route: 030
     Dates: start: 20150502, end: 20150502

REACTIONS (4)
  - Drug ineffective [Unknown]
  - Eye injury [Unknown]
  - Conjunctival haemorrhage [Recovered/Resolved]
  - Wrong technique in drug usage process [Unknown]

NARRATIVE: CASE EVENT DATE: 20150502
